FAERS Safety Report 7399202-4 (Version None)
Quarter: 2011Q2

REPORT INFORMATION
  Report Type: 
  Country: None (occurrence: None)
  Receive Date: 20110407
  Receipt Date: 20110331
  Transmission Date: 20111010
  Serious: Yes (Hospitalization)
  Sender: FDA-Public Use
  Company Number: US-US-EMD SERONO, INC.-7019564

PATIENT
  Sex: Female

DRUGS (7)
  1. REBIF [Suspect]
     Indication: MULTIPLE SCLEROSIS
     Route: 058
     Dates: start: 20100325, end: 20100101
  2. REBIF [Suspect]
     Route: 058
     Dates: start: 20100101, end: 20100101
  3. BLOOD PRESSURE MEDICATION [Concomitant]
     Indication: BLOOD PRESSURE MANAGEMENT
  4. REBIF [Suspect]
     Route: 058
     Dates: start: 20100101, end: 20101201
  5. REBIF [Suspect]
     Route: 058
  6. UNSPECIFIED MEDICATIONS [Concomitant]
  7. LOPRESSOR [Concomitant]
     Indication: BLOOD PRESSURE MANAGEMENT
     Dates: start: 20100101

REACTIONS (4)
  - PULMONARY THROMBOSIS [None]
  - GASTROINTESTINAL BACTERIAL INFECTION [None]
  - DIVERTICULITIS [None]
  - LARGE INTESTINE PERFORATION [None]
